FAERS Safety Report 8401221-3 (Version None)
Quarter: 2012Q2

REPORT INFORMATION
  Report Type: 
  Country: None (occurrence: None)
  Receive Date: 20120601
  Receipt Date: 20120522
  Transmission Date: 20120825
  Serious: Yes (Hospitalization, Other)
  Sender: FDA-Public Use
  Company Number: JP-VERTEX PHARMACEUTICALS INC.-AE-2012-002670

PATIENT
  Age: 61 Year
  Sex: Female

DRUGS (9)
  1. RIBAVIRIN [Concomitant]
     Route: 048
     Dates: start: 20120210, end: 20120307
  2. ENALAPRIL MALEATE [Concomitant]
     Route: 048
     Dates: end: 20120315
  3. RIBAVIRIN [Concomitant]
     Indication: HEPATITIS C
     Route: 048
     Dates: start: 20120209, end: 20120209
  4. PEGINTERFERON [Concomitant]
     Indication: HEPATITIS C
     Route: 058
     Dates: start: 20120209
  5. TELAVIC (TELAPREVIR) [Suspect]
     Indication: HEPATITIS C
     Route: 048
     Dates: start: 20120209, end: 20120321
  6. TELAVIC (TELAPREVIR) [Suspect]
     Route: 048
     Dates: start: 20120322, end: 20120329
  7. RIBAVIRIN [Concomitant]
     Route: 048
     Dates: start: 20120308, end: 20120401
  8. AMLODIPINE [Concomitant]
     Route: 048
     Dates: end: 20120315
  9. PEGINTERFERON [Concomitant]
     Route: 058
     Dates: end: 20120329

REACTIONS (6)
  - ANAEMIA [None]
  - RASH [None]
  - BLOOD URIC ACID INCREASED [None]
  - BLOOD CREATININE INCREASED [None]
  - MALAISE [None]
  - HAEMOGLOBIN DECREASED [None]
